FAERS Safety Report 5396822-3 (Version None)
Quarter: 2007Q3

REPORT INFORMATION
  Report Type: 
  Country: None (occurrence: None)
  Receive Date: 20070725
  Receipt Date: 20070601
  Transmission Date: 20080115
  Serious: Yes (Other)
  Sender: FDA-Public Use
  Company Number: US-JNJFOC-20070705123

PATIENT
  Weight: 48.54 kg

DRUGS (2)
  1. TOPAMAX [Suspect]
     Indication: MIGRAINE
  2. TOPAMAX [Suspect]
     Indication: CONVULSION

REACTIONS (5)
  - ASTHMA [None]
  - CONVULSION [None]
  - HEMIPARESIS [None]
  - SEDATION [None]
  - SLEEP DISORDER [None]
